FAERS Safety Report 6689038-1 (Version None)
Quarter: 2010Q2

REPORT INFORMATION
  Report Type: 
  Country: None (occurrence: None)
  Receive Date: 20100420
  Receipt Date: 20100408
  Transmission Date: 20101027
  Serious: Yes (Death, Other)
  Sender: FDA-Public Use
  Company Number: JP-PFIZER INC-2010019814

PATIENT
  Age: 50 Year
  Sex: Male
  Weight: 58 kg

DRUGS (6)
  1. SUNITINIB MALATE [Suspect]
     Indication: RENAL CELL CARCINOMA
     Dosage: 50 MG, 1X/DAY
     Route: 048
     Dates: start: 20090925, end: 20091112
  2. RINDERON [Concomitant]
     Route: 048
     Dates: end: 20091124
  3. AMLODIN [Concomitant]
     Route: 048
     Dates: end: 20091124
  4. FAMOTIDINE [Concomitant]
     Route: 048
     Dates: end: 20091124
  5. MAGNESIUM OXIDE [Concomitant]
     Route: 048
     Dates: start: 20091106, end: 20091119
  6. HYPEN [Concomitant]
     Route: 048
     Dates: start: 20091107, end: 20091124

REACTIONS (3)
  - ANAEMIA [None]
  - DISEASE PROGRESSION [None]
  - RENAL CELL CARCINOMA [None]
